FAERS Safety Report 7800928-6 (Version None)
Quarter: 2011Q4

REPORT INFORMATION
  Report Type: 
  Country: None (occurrence: None)
  Receive Date: 20111006
  Receipt Date: 20110929
  Transmission Date: 20120403
  Serious: Yes (Hospitalization)
  Sender: FDA-Public Use
  Company Number: JP-BRISTOL-MYERS SQUIBB COMPANY-16044711

PATIENT
  Age: 78 Year
  Sex: Male

DRUGS (1)
  1. TAXOL [Suspect]
     Indication: EXTRAMAMMARY PAGET'S DISEASE
     Dosage: ROUTE OF ADMINISTRATION - DIV
     Route: 050
     Dates: start: 20110810, end: 20110810

REACTIONS (1)
  - AORTIC DISSECTION [None]
